FAERS Safety Report 13650555 (Version 1)
Quarter: 2017Q2

REPORT INFORMATION
  Report Type: Spontaneous
  Country: US (occurrence: US)
  Receive Date: 20170614
  Receipt Date: 20170614
  Transmission Date: 20170830
  Serious: No
  Sender: FDA-Public Use
  Company Number: US-ELI_LILLY_AND_COMPANY-US201706004700

PATIENT
  Sex: Female

DRUGS (7)
  1. NOVOLOG [Suspect]
     Active Substance: INSULIN ASPART
     Indication: DIABETES MELLITUS
     Dosage: UNK, UNKNOWN
     Route: 065
     Dates: start: 2017
  2. CALTRATE                           /00944201/ [Concomitant]
     Active Substance: CALCIUM CARBONATE\CHOLECALCIFEROL
     Dosage: UNK
  3. LANTUS [Concomitant]
     Active Substance: INSULIN GLARGINE
     Indication: DIABETES MELLITUS
     Dosage: UNK, UNKNOWN
     Route: 065
  4. CINNAMON                           /01647501/ [Concomitant]
     Active Substance: CINNAMON
     Indication: SUPPLEMENTATION THERAPY
     Dosage: UNK, UNKNOWN
     Route: 065
  5. HUMALOG [Suspect]
     Active Substance: INSULIN LISPRO
     Indication: DIABETES MELLITUS
     Dosage: UNK, UNKNOWN
     Route: 058
  6. CALTRATE                           /00944201/ [Concomitant]
     Active Substance: CALCIUM CARBONATE\CHOLECALCIFEROL
     Indication: SUPPLEMENTATION THERAPY
     Dosage: UNK, UNKNOWN
     Route: 065
  7. MULTIPLE VITAMINS [Concomitant]
     Active Substance: VITAMINS
     Indication: SUPPLEMENTATION THERAPY
     Dosage: UNK, UNKNOWN
     Route: 065

REACTIONS (1)
  - Lip swelling [Not Recovered/Not Resolved]
